FAERS Safety Report 22210390 (Version 1)
Quarter: 2023Q2

REPORT INFORMATION
  Report Type: Spontaneous
  Country: GB (occurrence: GB)
  Receive Date: 20230414
  Receipt Date: 20230414
  Transmission Date: 20230722
  Serious: Yes (Life-Threatening, Hospitalization)
  Sender: FDA-Public Use
  Company Number: None

PATIENT
  Age: 51 Year

DRUGS (23)
  1. WARFARIN [Suspect]
     Active Substance: WARFARIN
     Indication: Product used for unknown indication
     Dosage: RECENT WARFARIN DOSES 20/1=7MG, 21/1=6MG, 22/1=5MG, 23/1=3MG, 24/1=3MG
     Route: 065
     Dates: start: 20230112, end: 20230125
  2. ALFENTANIL [Concomitant]
     Active Substance: ALFENTANIL
     Indication: Product used for unknown indication
     Dosage: 72 ML DAILY;
  3. ATORVASTATIN [Concomitant]
     Active Substance: ATORVASTATIN
     Indication: Product used for unknown indication
     Dosage: 40 MILLIGRAM DAILY; NIGHT
  4. BISOPROLOL [Concomitant]
     Active Substance: BISOPROLOL
     Indication: Product used for unknown indication
     Dosage: 2.5 MILLIGRAM DAILY; MORNING
     Dates: start: 20230118, end: 20230126
  5. CODEINE [Concomitant]
     Active Substance: CODEINE
     Indication: Product used for unknown indication
     Dosage: LIQUID 30-60MG QDS
     Dates: start: 20230122, end: 20230126
  6. DAPAGLIFLOZIN [Concomitant]
     Active Substance: DAPAGLIFLOZIN
     Indication: Cardiac failure
     Dosage: 10 MILLIGRAM DAILY; MORNING, STARTED 18/1 FOR HEART FAILURE AS PER CARDIOLOGY, WITHHELD 25/1
     Dates: start: 20230118, end: 20230125
  7. ENOXAPARIN [Concomitant]
     Active Substance: ENOXAPARIN
     Indication: Product used for unknown indication
     Dosage: 120MG OD STARTED 25/1 BUT DOSE NOT GIVEN AS INR 4.4, WAS 2 YESTERDAY.,
     Dates: start: 20230112, end: 20230120
  8. FUROSEMIDE [Concomitant]
     Active Substance: FUROSEMIDE
     Indication: Product used for unknown indication
     Dosage: 80 MILLIGRAM DAILY;
     Route: 042
     Dates: start: 20230126
  9. LACTULOSE [Concomitant]
     Active Substance: LACTULOSE
     Indication: Product used for unknown indication
     Dosage: 30 ML DAILY;
     Dates: start: 20230122, end: 20230126
  10. LANSOPRAZOLE [Concomitant]
     Active Substance: LANSOPRAZOLE
     Indication: Product used for unknown indication
     Dosage: 30 MILLIGRAM DAILY; MORNING
     Dates: start: 20230126
  11. NOREPINEPHRINE [Concomitant]
     Active Substance: NOREPINEPHRINE
     Indication: Product used for unknown indication
     Dosage: 96 ML DAILY; 4MG/50ML,
     Dates: start: 20230324
  12. NYSTATIN [Concomitant]
     Active Substance: NYSTATIN
     Indication: Product used for unknown indication
     Dosage: 4 ML DAILY;
     Dates: start: 20230119, end: 20230126
  13. ACETAMINOPHEN [Concomitant]
     Active Substance: ACETAMINOPHEN
     Indication: Product used for unknown indication
     Dosage: 4 GRAM DAILY;
  14. PHOSPHATE SANDOZ EFFERVESCENT [Concomitant]
     Indication: Product used for unknown indication
     Dosage: 6 DOSAGE FORMS DAILY;
     Dates: start: 20230125
  15. PROPOFOL [Concomitant]
     Active Substance: PROPOFOL
     Indication: Product used for unknown indication
     Dosage: 240 ML DAILY;
  16. RAMIPRIL [Concomitant]
     Active Substance: RAMIPRIL
     Indication: Product used for unknown indication
     Dosage: 3.75 MILLIGRAM DAILY; MORNING
     Dates: end: 20230126
  17. SPIRONOLACTONE [Concomitant]
     Active Substance: SPIRONOLACTONE
     Indication: Product used for unknown indication
     Dosage: 25 MILLIGRAM DAILY; MORNING
     Dates: start: 20230125, end: 20230126
  18. TEICOPLANIN [Concomitant]
     Active Substance: TEICOPLANIN
     Indication: Prophylaxis
     Dosage: 600MG EVERY 12 HOURS X 3 DOSES THEN DAILY STARTED 25/1 FOR ENTEROCOCCAL COVER
     Route: 042
  19. MOVICOL [Concomitant]
     Active Substance: POLYETHYLENE GLYCOL 3350\POTASSIUM CHLORIDE\SODIUM BICARBONATE\SODIUM CHLORIDE
     Indication: Product used for unknown indication
     Dosage: 2 DOSAGE FORMS DAILY;
     Dates: end: 20230126
  20. PIPERACILLIN AND TAZOBACTAM [Concomitant]
     Active Substance: PIPERACILLIN SODIUM\TAZOBACTAM SODIUM
     Indication: Pneumonia
     Dosage: 13.5 GRAM DAILY;
     Dates: start: 20230123
  21. WATER [Concomitant]
     Active Substance: WATER
     Indication: Product used for unknown indication
     Dosage: 1000 ML DAILY;
  22. CHOLECALCIFEROL [Concomitant]
     Active Substance: CHOLECALCIFEROL
     Indication: Product used for unknown indication
     Dosage: LIQUID 50,000 UNITS WEEKLY (VIT D WAS 22.2) STARTED 18/1, HAD 1 DOSE THEN WITHHELD
     Dates: start: 20230118
  23. SENNA [Concomitant]
     Active Substance: SENNA LEAF\SENNOSIDES\SENNOSIDES A AND B
     Indication: Product used for unknown indication
     Dosage: 20 ML DAILY;
     Dates: end: 20230126

REACTIONS (2)
  - Cerebrovascular accident [Unknown]
  - Treatment failure [Unknown]
